FAERS Safety Report 5736887-X (Version None)
Quarter: 2008Q2

REPORT INFORMATION
  Report Type: 
  Country: None (occurrence: None)
  Receive Date: 20080508
  Receipt Date: 20080423
  Transmission Date: 20081010
  Serious: Yes (Congenital Anomaly)
  Sender: FDA-Public Use
  Company Number: TNZIE200800080

PATIENT
  Sex: Female
  Weight: 2.8 kg

DRUGS (4)
  1. INNOHEP [Suspect]
     Indication: THROMBOSIS PROPHYLAXIS
     Dosage: (4500 IU, DAILY), TRANSPLACENTAL ; (4500 IU, DAILY), TRANSPLACENTAL
     Route: 064
     Dates: start: 20011003, end: 20011203
  2. INNOHEP [Suspect]
     Indication: THROMBOSIS PROPHYLAXIS
     Dosage: (4500 IU, DAILY), TRANSPLACENTAL ; (4500 IU, DAILY), TRANSPLACENTAL
     Route: 064
     Dates: start: 20011226, end: 20011226
  3. MEPERIDINE HCL [Concomitant]
  4. PROCHLORPERAZINE MALEATE [Concomitant]

REACTIONS (3)
  - APGAR SCORE LOW [None]
  - EXOPHTHALMOS CONGENITAL [None]
  - MATERNAL DRUGS AFFECTING FOETUS [None]
